FAERS Safety Report 22176475 (Version 1)
Quarter: 2023Q2

REPORT INFORMATION
  Report Type: Spontaneous
  Country: US (occurrence: None)
  Receive Date: 20230404
  Receipt Date: 20230404
  Transmission Date: 20230722
  Serious: Yes (Other)
  Sender: FDA-Public Use
  Company Number: None

PATIENT
  Age: 35 Year
  Sex: 0

DRUGS (1)
  1. TESTOSTERONE CYPIONATE [Suspect]
     Active Substance: TESTOSTERONE CYPIONATE
     Indication: Testicular failure
     Dosage: OTHER QUANTITY : 100 MG;?FREQUENCY : WEEKLY;?
     Route: 030
     Dates: start: 20230131, end: 20230324

REACTIONS (11)
  - Adverse drug reaction [None]
  - Injection related reaction [None]
  - Suicidal ideation [None]
  - Pain in extremity [None]
  - Muscular weakness [None]
  - Confusional state [None]
  - Dizziness [None]
  - Anxiety [None]
  - Insomnia [None]
  - Hypertension [None]
  - Product substitution issue [None]

NARRATIVE: CASE EVENT DATE: 20230131
